FAERS Safety Report 16252005 (Version 2)
Quarter: 2019Q2

REPORT INFORMATION
  Report Type: Report from Study
  Country: US (occurrence: US)
  Receive Date: 20190429
  Receipt Date: 20190501
  Transmission Date: 20190711
  Serious: Yes (Other)
  Sender: FDA-Public Use
  Company Number: US-JNJFOC-20190318198

PATIENT
  Age: 70 Year
  Sex: Male

DRUGS (8)
  1. CARVEDILOL. [Concomitant]
     Active Substance: CARVEDILOL
  2. GLUCOSAMINE [Concomitant]
     Active Substance: GLUCOSAMINE
  3. VITAMIN D NOS [Concomitant]
     Active Substance: VITAMIN D NOS
  4. FISH OIL [Concomitant]
     Active Substance: FISH OIL
  5. THYROID [Concomitant]
     Active Substance: LEVOTHYROXINE\LIOTHYRONINE
  6. IMBRUVICA [Suspect]
     Active Substance: IBRUTINIB
     Indication: CHRONIC LYMPHOCYTIC LEUKAEMIA
     Route: 048
     Dates: start: 20181207
  7. IMBRUVICA [Suspect]
     Active Substance: IBRUTINIB
     Indication: CHRONIC LYMPHOCYTIC LEUKAEMIA
     Dosage: 420 MG, QD
     Route: 048
     Dates: start: 20181203
  8. VITAMIN B12 [Concomitant]
     Active Substance: CYANOCOBALAMIN

REACTIONS (16)
  - Skin fissures [Not Recovered/Not Resolved]
  - Malaise [Unknown]
  - Thrombosis [Unknown]
  - Dysstasia [Unknown]
  - Rash [Recovered/Resolved]
  - Pain [Recovering/Resolving]
  - Nausea [Unknown]
  - Nodule [Not Recovered/Not Resolved]
  - Blood count abnormal [Unknown]
  - Fatigue [Unknown]
  - Muscular weakness [Not Recovered/Not Resolved]
  - Tongue disorder [Recovering/Resolving]
  - White blood cell count decreased [Not Recovered/Not Resolved]
  - Pain in extremity [Unknown]
  - Weight increased [Unknown]
  - Dizziness [Unknown]

NARRATIVE: CASE EVENT DATE: 201812
